FAERS Safety Report 20107036 (Version 1)
Quarter: 2021Q4

REPORT INFORMATION
  Report Type: Spontaneous
  Country: US (occurrence: None)
  Receive Date: 20211123
  Receipt Date: 20211123
  Transmission Date: 20220303
  Serious: No
  Sender: FDA-Public Use
  Company Number: None

PATIENT
  Age: 78 Year
  Sex: Female

DRUGS (1)
  1. DEFERASIROX [Suspect]
     Active Substance: DEFERASIROX
     Indication: Product used for unknown indication
     Dosage: OTHER QUANTITY : 2 OF THE 500MG TAB;?FREQUENCY : DAILY;?
     Route: 048
     Dates: start: 202110

REACTIONS (3)
  - Diarrhoea [None]
  - Treatment noncompliance [None]
  - Product dose omission issue [None]

NARRATIVE: CASE EVENT DATE: 20211123
